FAERS Safety Report 24108222 (Version 1)
Quarter: 2024Q3

REPORT INFORMATION
  Report Type: Report from Study
  Country: US (occurrence: US)
  Receive Date: 20240718
  Receipt Date: 20240718
  Transmission Date: 20241016
  Serious: Yes (Other)
  Sender: ABBVIE
  Company Number: US-ABBVIE-5842528

PATIENT
  Sex: Male

DRUGS (1)
  1. UBRELVY [Suspect]
     Active Substance: UBROGEPANT
     Indication: Migraine
     Route: 048

REACTIONS (7)
  - Knee operation [Unknown]
  - Headache [Unknown]
  - Neck pain [Unknown]
  - Orthopaedic procedure [Unknown]
  - Bursal operation [Unknown]
  - Limb operation [Unknown]
  - Spinal operation [Unknown]
